FAERS Safety Report 6537607-1 (Version None)
Quarter: 2010Q1

REPORT INFORMATION
  Report Type: 
  Country: None (occurrence: None)
  Receive Date: 20100114
  Receipt Date: 20100112
  Transmission Date: 20100710
  Serious: Yes (Other)
  Sender: FDA-Public Use
  Company Number: A0838988A

PATIENT
  Age: 45 Year
  Sex: Male

DRUGS (9)
  1. VENTOLIN [Suspect]
     Indication: ASTHMA
     Dosage: 90MCG AS REQUIRED
     Route: 055
     Dates: start: 20090601
  2. FLOVENT [Suspect]
     Indication: ASTHMA
     Route: 055
  3. SEREVENT [Suspect]
     Indication: ASTHMA
     Route: 055
     Dates: start: 20030101, end: 20030101
  4. ADVAIR DISKUS 100/50 [Suspect]
     Indication: ASTHMA
     Route: 055
     Dates: start: 20040101, end: 20050101
  5. AMITRIPTYLINE [Concomitant]
  6. DIAZEPAM [Concomitant]
  7. LOVASTATIN [Concomitant]
  8. VITAMINS [Concomitant]
  9. FISH OIL [Concomitant]

REACTIONS (6)
  - ASTHMA [None]
  - COUGH [None]
  - DRUG ADMINISTRATION ERROR [None]
  - DRUG INEFFECTIVE [None]
  - MUSCLE SPASMS [None]
  - PRODUCT QUALITY ISSUE [None]
